FAERS Safety Report 12268014 (Version 1)
Quarter: 2016Q2

REPORT INFORMATION
  Report Type: Report from Study
  Country: PR (occurrence: PR)
  Receive Date: 20160414
  Receipt Date: 20160414
  Transmission Date: 20160815
  Serious: Yes (Hospitalization)
  Sender: FDA-Public Use
  Company Number: PR-ABBVIE-16K-131-1600417-00

PATIENT
  Age: 19 Year
  Sex: Female
  Weight: 47.67 kg

DRUGS (2)
  1. HUMIRA [Suspect]
     Active Substance: ADALIMUMAB
     Indication: CROHN^S DISEASE
     Route: 058
     Dates: start: 201001, end: 201008
  2. HUMIRA [Suspect]
     Active Substance: ADALIMUMAB
     Indication: PSORIATIC ARTHROPATHY

REACTIONS (5)
  - Ovarian abscess [Recovered/Resolved]
  - Gastrointestinal inflammation [Unknown]
  - Ovarian abscess [Recovered/Resolved]
  - Colectomy [Recovered/Resolved]
  - Colonic fistula [Recovered/Resolved]

NARRATIVE: CASE EVENT DATE: 201005
